FAERS Safety Report 6039739-3 (Version None)
Quarter: 2009Q1

REPORT INFORMATION
  Report Type: 
  Country: None (occurrence: None)
  Receive Date: 20090116
  Receipt Date: 20090107
  Transmission Date: 20090719
  Serious: Yes (Other)
  Sender: FDA-Public Use
  Company Number: DE-WYE-H07364208

PATIENT
  Age: 62 Year
  Sex: Female

DRUGS (8)
  1. PANTOZOL [Suspect]
     Indication: HELICOBACTER GASTRITIS
     Route: 048
     Dates: start: 20070501, end: 20070501
  2. CLARITHROMYCIN [Suspect]
     Indication: HELICOBACTER GASTRITIS
     Route: 048
     Dates: start: 20070501, end: 20070501
  3. NITROGLICERINA [Concomitant]
     Dosage: AS NEEDED
  4. LEVOTHYROXINE SODIUM [Concomitant]
  5. OLMESARTAN MEDOXOMIL [Concomitant]
  6. SIMVASTATIN [Concomitant]
  7. AMOXICILLIN TRIHYDRATE [Suspect]
     Indication: HELICOBACTER GASTRITIS
     Route: 048
     Dates: start: 20070501, end: 20070501
  8. ENALAPRIL MALEATE [Concomitant]

REACTIONS (1)
  - GASTROENTERITIS EOSINOPHILIC [None]
